FAERS Safety Report 23879590 (Version 1)
Quarter: 2024Q2

REPORT INFORMATION
  Report Type: Report from Study
  Country: US (occurrence: US)
  Receive Date: 20240521
  Receipt Date: 20240521
  Transmission Date: 20240716
  Serious: Yes (Other)
  Sender: FDA-Public Use
  Company Number: US-JNJFOC-20231101627

PATIENT
  Sex: Female

DRUGS (1)
  1. TECVAYLI [Suspect]
     Active Substance: TECLISTAMAB-CQYV
     Indication: Plasma cell myeloma
     Route: 065
     Dates: start: 20231030

REACTIONS (5)
  - Cytokine release syndrome [Unknown]
  - Blood pressure increased [Unknown]
  - Muscle spasms [Unknown]
  - Tremor [Unknown]
  - Gait disturbance [Unknown]
